FAERS Safety Report 9424979 (Version 2)
Quarter: 2013Q3

REPORT INFORMATION
  Report Type: Spontaneous
  Country: US (occurrence: US)
  Receive Date: 20130729
  Receipt Date: 20130816
  Transmission Date: 20140515
  Serious: No
  Sender: FDA-Public Use
  Company Number: US-PFIZER INC-2013217403

PATIENT
  Age: 27 Month
  Sex: Male
  Weight: 9.52 kg

DRUGS (1)
  1. GENOTROPIN [Suspect]
     Indication: GROWTH HORMONE DEFICIENCY
     Dosage: 0.4 MG, 1X/DAY
     Route: 030
     Dates: start: 20130720

REACTIONS (1)
  - Injection site rash [Not Recovered/Not Resolved]
